FAERS Safety Report 8806678 (Version 1)
Quarter: 2012Q4

REPORT INFORMATION
  Report Type: Spontaneous
  Country: US (occurrence: None)
  Receive Date: 20120920
  Receipt Date: 20120920
  Transmission Date: 20130627
  Serious: Yes (Other)
  Sender: FDA-Public Use
  Company Number: None

PATIENT
  Age: 22 Year
  Sex: Male
  Weight: 78.02 kg

DRUGS (5)
  1. KEPPRA XR [Suspect]
     Indication: SEIZURE
     Dosage: 500mg 3 tablets BFast + Bedtime p.o.
     Route: 048
     Dates: start: 20080603
  2. DEPAKOTE ER [Concomitant]
  3. FELBATON [Concomitant]
  4. DIASTAT [Concomitant]
  5. KLONOPIN [Concomitant]

REACTIONS (1)
  - Therapy responder [None]
